FAERS Safety Report 6739768-8 (Version None)
Quarter: 2010Q2

REPORT INFORMATION
  Report Type: 
  Country: None (occurrence: None)
  Receive Date: 20100525
  Receipt Date: 20100510
  Transmission Date: 20101027
  Serious: Yes (Death, Other)
  Sender: FDA-Public Use
  Company Number: US-BAXTER-2010BH003902

PATIENT
  Sex: Male

DRUGS (1)
  1. HEPARIN SODIUM INJECTION [Suspect]
     Indication: THROMBOSIS PROPHYLAXIS
     Route: 058
     Dates: start: 20070417, end: 20070425

REACTIONS (4)
  - CHRONIC HEPATIC FAILURE [None]
  - DRUG HYPERSENSITIVITY [None]
  - GASTROINTESTINAL HAEMORRHAGE [None]
  - RENAL FAILURE CHRONIC [None]
